FAERS Safety Report 9807953 (Version 1)
Quarter: 2014Q1

REPORT INFORMATION
  Report Type: Spontaneous
  Country: US (occurrence: US)
  Receive Date: 20140110
  Receipt Date: 20140110
  Transmission Date: 20141002
  Serious: Yes (Other)
  Sender: FDA-Public Use
  Company Number: US-PFIZER INC-2014006265

PATIENT
  Sex: 0

DRUGS (2)
  1. CHANTIX [Suspect]
     Indication: SMOKING CESSATION THERAPY
     Dosage: UNK
  2. CHANTIX [Suspect]
     Dosage: LOWER DOSAGE

REACTIONS (5)
  - Carcinoid tumour [Unknown]
  - Systemic lupus erythematosus [Unknown]
  - Hallucination, auditory [Unknown]
  - Lung disorder [Unknown]
  - Renal disorder [Unknown]
